FAERS Safety Report 7731549-1 (Version None)
Quarter: 2011Q3

REPORT INFORMATION
  Report Type: 
  Country: None (occurrence: None)
  Receive Date: 20110906
  Receipt Date: 20110808
  Transmission Date: 20111222
  Serious: Yes (Hospitalization)
  Sender: FDA-Public Use
  Company Number: ES-BAYER-2011-069597

PATIENT
  Age: 80 Year
  Sex: Male

DRUGS (5)
  1. SINEMET [Concomitant]
     Indication: PARKINSON'S DISEASE
     Dosage: 1 DF, HS
     Route: 048
     Dates: start: 20101122
  2. SERTRALINE HYDROCHLORIDE [Concomitant]
     Indication: DEPRESSION
     Dosage: 100 MG, HS
     Route: 048
     Dates: start: 20060101
  3. DICLOFENAC SODIUM [Interacting]
     Indication: BACK PAIN
     Dosage: 50 MG, TID
     Route: 048
     Dates: start: 20110216, end: 20110503
  4. ASPIRIN [Suspect]
     Indication: PROPHYLAXIS
     Dosage: 100 MG, HS
     Route: 048
     Dates: start: 20061121, end: 20110503
  5. SEROQUEL [Concomitant]
     Indication: AGITATION
     Dosage: 100 MG, HS
     Route: 048
     Dates: start: 20071204

REACTIONS (1)
  - UPPER GASTROINTESTINAL HAEMORRHAGE [None]
